FAERS Safety Report 23447128 (Version 1)
Quarter: 2024Q1

REPORT INFORMATION
  Report Type: Spontaneous
  Country: US (occurrence: None)
  Receive Date: 20240126
  Receipt Date: 20240126
  Transmission Date: 20240409
  Serious: No
  Sender: FDA-Public Use
  Company Number: None

PATIENT
  Age: 42 Year
  Sex: Male
  Weight: 98.43 kg

DRUGS (11)
  1. CABENUVA [Suspect]
     Active Substance: CABOTEGRAVIR\RILPIVIRINE
     Indication: HIV infection
     Dosage: OTHER FREQUENCY : EVERY 2 MONTHS;?
     Route: 030
     Dates: start: 20231030
  2. HAIR SKIN AND NAILS GUMMIES [Concomitant]
  3. ALEVE 220MG TABLETS [Concomitant]
  4. MULTIVITAMIN TABLETS [Concomitant]
  5. PROZAC 10MG CAPSULES [Concomitant]
  6. ALBUTEROL HFA INH (200 PUFFS) 8.5GM [Concomitant]
  7. FEXOFENADINE [Concomitant]
     Active Substance: FEXOFENADINE HYDROCHLORIDE
  8. GABAPENTIN [Concomitant]
     Active Substance: GABAPENTIN
  9. HYDROXYZINE HCL 25MG TABS (WHITE) [Concomitant]
  10. PRAZOSIN 1MG CAPSULES [Concomitant]
  11. VALACYCLOVIR 1GM TABLETS [Concomitant]

REACTIONS (3)
  - Insomnia [None]
  - Sleep terror [None]
  - Sleep apnoea syndrome [None]

NARRATIVE: CASE EVENT DATE: 20231130
